FAERS Safety Report 8476433-3 (Version None)
Quarter: 2012Q2

REPORT INFORMATION
  Report Type: 
  Country: None (occurrence: None)
  Receive Date: 20120619
  Receipt Date: 20120608
  Transmission Date: 20120825
  Serious: Yes (Hospitalization)
  Sender: FDA-Public Use
  Company Number: 2012SP031756

PATIENT
  Sex: Male

DRUGS (4)
  1. VICTRELIS [Suspect]
     Indication: HEPATITIS C
     Dosage: 200 MG, TID, PO
     Route: 048
     Dates: start: 20120323
  2. VICTRELIS [Suspect]
     Indication: HEPATITIS C
     Dosage: 200 MG, TID, PO
     Route: 048
     Dates: start: 20120518
  3. PEG-INTRON [Suspect]
     Indication: HEPATITIS C
     Dosage: 100 MCG, QW, SC
     Route: 058
     Dates: start: 20120224
  4. REBETOL [Suspect]
     Indication: HEPATITIS C
     Dosage: 200 MG, BID, PO
     Route: 048
     Dates: start: 20120224

REACTIONS (4)
  - LEUKOPENIA [None]
  - PALPITATIONS [None]
  - ANAEMIA [None]
  - APPENDICITIS [None]
